FAERS Safety Report 13711448 (Version 1)
Quarter: 2017Q3

REPORT INFORMATION
  Report Type: Spontaneous
  Country: US (occurrence: US)
  Receive Date: 20170701
  Receipt Date: 20170701
  Transmission Date: 20171127
  Serious: Yes (Disabling, Other)
  Sender: FDA-Public Use
  Company Number: None

PATIENT
  Age: 68 Year
  Sex: Male
  Weight: 63.9 kg

DRUGS (14)
  1. ZOLPIDEM TARTRATE 10 MG TABTABS [Suspect]
     Active Substance: ZOLPIDEM TARTRATE
     Indication: INSOMNIA
     Dosage: OTHER STRENGTH:MG;QUANTITY:1 TABLET(S); AT BEDTIME?
     Route: 048
     Dates: start: 19980101, end: 20130223
  2. FLUOXETINE HCL CAPSULES USP, 10MG, 20 MG, 40 MG [Suspect]
     Active Substance: FLUOXETINE HYDROCHLORIDE
     Indication: DEPRESSION
     Dosage: ?          OTHER STRENGTH:MG;QUANTITY:1 CAPSULE(S);?
     Route: 048
     Dates: start: 20130625, end: 20160215
  3. CIALIS [Concomitant]
     Active Substance: TADALAFIL
  4. ATARAX [Concomitant]
     Active Substance: HYDROXYZINE HYDROCHLORIDE
  5. RED YEAST RICE [Concomitant]
     Active Substance: DIETARY SUPPLEMENT
  6. ZOLPIDEM TARTRATE 10 MG TABTABS [Suspect]
     Active Substance: ZOLPIDEM TARTRATE
     Indication: STRESS
     Dosage: OTHER STRENGTH:MG;QUANTITY:1 TABLET(S); AT BEDTIME?
     Route: 048
     Dates: start: 19980101, end: 20130223
  7. METOPROLOL ER [Concomitant]
     Active Substance: METOPROLOL SUCCINATE
  8. VITAMIN B12 [Concomitant]
     Active Substance: CYANOCOBALAMIN
  9. AMLODOPINE BESYLATE [Concomitant]
     Active Substance: AMLODIPINE BESYLATE
  10. PRAZOSIN. [Concomitant]
     Active Substance: PRAZOSIN
  11. VITAMIN C [Concomitant]
     Active Substance: ASCORBIC ACID
  12. ZOLPIDEM TARTRATE 10 MG TABTABS [Suspect]
     Active Substance: ZOLPIDEM TARTRATE
     Indication: ANXIETY
     Dosage: OTHER STRENGTH:MG;QUANTITY:1 TABLET(S); AT BEDTIME?
     Route: 048
     Dates: start: 19980101, end: 20130223
  13. FLUOXETINE HCL CAPSULES USP, 10MG, 20 MG, 40 MG [Suspect]
     Active Substance: FLUOXETINE HYDROCHLORIDE
     Indication: ANXIETY
     Dosage: ?          OTHER STRENGTH:MG;QUANTITY:1 CAPSULE(S);?
     Route: 048
     Dates: start: 20130625, end: 20160215
  14. COQ 10 [Concomitant]
     Active Substance: UBIDECARENONE

REACTIONS (29)
  - Withdrawal syndrome [None]
  - Tinnitus [None]
  - Restless legs syndrome [None]
  - Suicidal ideation [None]
  - Paraesthesia [None]
  - Chest pain [None]
  - Anxiety [None]
  - Dyspnoea [None]
  - Sensory disturbance [None]
  - Anger [None]
  - Gastrointestinal disorder [None]
  - Derealisation [None]
  - Cognitive disorder [None]
  - Akathisia [None]
  - Agoraphobia [None]
  - Concussion [None]
  - Presyncope [None]
  - Skull fracture [None]
  - Syncope [None]
  - Depersonalisation/derealisation disorder [None]
  - Phantom pain [None]
  - Musculoskeletal pain [None]
  - Hallucinations, mixed [None]
  - Loss of consciousness [None]
  - Nightmare [None]
  - Insomnia [None]
  - Product odour abnormal [None]
  - Dysgeusia [None]
  - Muscle spasms [None]
